FAERS Safety Report 8270030-0 (Version None)
Quarter: 2012Q2

REPORT INFORMATION
  Report Type: 
  Country: None (occurrence: None)
  Receive Date: 20120405
  Receipt Date: 20120322
  Transmission Date: 20120825
  Serious: Yes (Life-Threatening, Hospitalization)
  Sender: FDA-Public Use
  Company Number: FR-20120066

PATIENT
  Age: 72 Year
  Sex: Female

DRUGS (7)
  1. ISOPTIN [Suspect]
     Indication: ARTERIOGRAM CORONARY
     Dosage: 2.5 MG (2.5 MG,1 IN 1 TOTAL) 1) INTRA-ARTERIAL
     Route: 013
     Dates: start: 20120209, end: 20120209
  2. PERINDOPRIL/INDAPAMIDE MYLAN (INDAPAMIDE, PERINDOPRIL)(INDAPAMIDE, PER [Concomitant]
  3. INEGY (EZETIMIBE, SIMVASTATIN)(EZETIMIBE, SIMVASTATIN) [Concomitant]
  4. HEPARIN SODIUM [Suspect]
     Indication: ARTERIOGRAM CORONARY
     Dosage: 5000 IU (5000 IU,1 IN 1 TOTAL) INTRA-ARTERIAL
     Route: 013
     Dates: start: 20120209, end: 20120209
  5. AMLODIPINE [Concomitant]
  6. HEXABRIX [Suspect]
     Indication: ARTERIOGRAM CORONARY
     Dosage: 371 ML (371 ML, 1 IN 1 TOTAL), INTRAVENOUS (NOT OTHERWISE SPECIFIED)
     Route: 042
     Dates: start: 20120209, end: 20120209
  7. KARDEGIC (ACETYLSALICYLATE LYSINE)(ACETYLSALICYLATE LYSINE) [Concomitant]

REACTIONS (11)
  - OXYGEN SATURATION DECREASED [None]
  - THROAT IRRITATION [None]
  - BLOOD PRESSURE FLUCTUATION [None]
  - HYPOTENSION [None]
  - URTICARIA [None]
  - HISTAMINE LEVEL INCREASED [None]
  - ACUTE PULMONARY OEDEMA [None]
  - FEELING OF BODY TEMPERATURE CHANGE [None]
  - FACE OEDEMA [None]
  - DIZZINESS POSTURAL [None]
  - BLOOD IMMUNOGLOBULIN E INCREASED [None]
